FAERS Safety Report 18620228 (Version 3)
Quarter: 2021Q2

REPORT INFORMATION
  Report Type: Spontaneous
  Country: US (occurrence: US)
  Receive Date: 20201215
  Receipt Date: 20210611
  Transmission Date: 20210717
  Serious: Yes (Hospitalization)
  Sender: FDA-Public Use
  Company Number: US-THERATECHNOLOGIES INC.-2020-THE-TES-000301

PATIENT
  Age: 70 Year
  Sex: Male

DRUGS (1)
  1. EGRIFTA SV [Suspect]
     Active Substance: TESAMORELIN ACETATE
     Indication: LIPODYSTROPHY ACQUIRED
     Dosage: 1.4 MG, QD
     Route: 058
     Dates: start: 20200314

REACTIONS (3)
  - Product dose omission issue [Unknown]
  - Injury [Unknown]
  - Malaise [Not Recovered/Not Resolved]

NARRATIVE: CASE EVENT DATE: 20201201
